FAERS Safety Report 15851534 (Version 1)
Quarter: 2019Q1

REPORT INFORMATION
  Report Type: Spontaneous
  Country: US (occurrence: US)
  Receive Date: 20190122
  Receipt Date: 20190122
  Transmission Date: 20190417
  Serious: No
  Sender: FDA-Public Use
  Company Number: US-TEVA-2019-US-999527

PATIENT
  Sex: Male

DRUGS (2)
  1. CLONAZEPAM ACTAVIS [Suspect]
     Active Substance: CLONAZEPAM
     Indication: PANIC ATTACK
     Route: 065
     Dates: start: 20190110
  2. CLONAZEPAM ACTAVIS [Suspect]
     Active Substance: CLONAZEPAM
     Indication: SEIZURE

REACTIONS (7)
  - Headache [Unknown]
  - Irritability [Unknown]
  - Memory impairment [Unknown]
  - Feeling abnormal [Unknown]
  - Product substitution issue [Unknown]
  - Aggression [Unknown]
  - Mood swings [Unknown]

NARRATIVE: CASE EVENT DATE: 20190110
